FAERS Safety Report 25031741 (Version 1)
Quarter: 2025Q1

REPORT INFORMATION
  Report Type: Spontaneous
  Country: US (occurrence: None)
  Receive Date: 20250302
  Receipt Date: 20250302
  Transmission Date: 20250408
  Serious: Yes (Other)
  Sender: FDA-CTU
  Company Number: None

PATIENT
  Sex: Male

DRUGS (1)
  1. DROXIDOPA [Suspect]
     Active Substance: DROXIDOPA
     Dates: start: 20230412

REACTIONS (4)
  - Cerebrovascular accident [None]
  - Rib fracture [None]
  - Hernia [None]
  - Osteomyelitis [None]
